FAERS Safety Report 12991277 (Version 1)
Quarter: 2016Q4

REPORT INFORMATION
  Report Type: Spontaneous
  Country: NO (occurrence: NO)
  Receive Date: 20161201
  Receipt Date: 20161201
  Transmission Date: 20170207
  Serious: Yes (Other)
  Sender: FDA-Public Use
  Company Number: NO-MYLANLABS-2016M1052793

PATIENT

DRUGS (6)
  1. ALBYL-E [Concomitant]
     Active Substance: ASPIRIN\MAGNESIUM OXIDE
     Indication: PRODUCT USED FOR UNKNOWN INDICATION
     Dates: start: 20030101
  2. MYLAN-ATORVASTATIN [Suspect]
     Active Substance: ATORVASTATIN
     Indication: CORONARY ARTERY DISEASE
     Dosage: 40 MG, QD
     Dates: start: 20160701, end: 20161004
  3. AMLODIPIN ACTAVIS                  /00972402/ [Concomitant]
     Indication: HYPERTENSION
     Dates: start: 20080101
  4. MONOKET [Concomitant]
     Active Substance: ISOSORBIDE MONONITRATE
     Indication: PRODUCT USED FOR UNKNOWN INDICATION
     Dates: start: 20030101
  5. ATENOLOL MYLAN [Concomitant]
     Active Substance: ATENOLOL
     Indication: PRODUCT USED FOR UNKNOWN INDICATION
     Dates: start: 19900101
  6. PERSANTIN [Concomitant]
     Active Substance: DIPYRIDAMOLE
     Indication: CORONARY ARTERY DISEASE
     Dates: start: 20160520

REACTIONS (4)
  - General physical health deterioration [Unknown]
  - Hepatitis [Recovering/Resolving]
  - Pruritus [Recovering/Resolving]
  - Liver function test increased [Recovered/Resolved]

NARRATIVE: CASE EVENT DATE: 20160801
